FAERS Safety Report 7155115-4 (Version None)
Quarter: 2010Q4

REPORT INFORMATION
  Report Type: 
  Country: None (occurrence: None)
  Receive Date: 20101214
  Receipt Date: 20101103
  Transmission Date: 20110411
  Serious: No
  Sender: FDA-Public Use
  Company Number: US-AMGEN-KDL277026

PATIENT

DRUGS (3)
  1. ENBREL [Suspect]
     Indication: JUVENILE ARTHRITIS
     Dosage: 50 MG, QWK
     Route: 058
     Dates: start: 20080201
  2. ENBREL [Suspect]
     Dates: start: 20080429, end: 20100801
  3. ENBREL [Suspect]
     Dates: start: 20080101, end: 20100901

REACTIONS (6)
  - ARTHRALGIA [None]
  - INJECTION SITE PAIN [None]
  - MALAISE [None]
  - PYREXIA [None]
  - SINUSITIS [None]
  - STOMATITIS [None]
